FAERS Safety Report 5919354-X (Version None)
Quarter: 2008Q4

REPORT INFORMATION
  Report Type: 
  Country: None (occurrence: None)
  Receive Date: 20081015
  Receipt Date: 20081009
  Transmission Date: 20090506
  Serious: Yes (Hospitalization)
  Sender: FDA-Public Use
  Company Number: A0751872A

PATIENT
  Age: 50 Year
  Sex: Female
  Weight: 155 kg

DRUGS (5)
  1. FLIXOTIDE [Suspect]
     Route: 065
     Dates: start: 20030101, end: 20080916
  2. DIOVAN [Concomitant]
     Dates: start: 20000101
  3. SUSTRATE [Concomitant]
     Dates: start: 20000101
  4. ASPIRIN [Concomitant]
     Dates: start: 20000101
  5. BECLOSOL [Concomitant]
     Dates: start: 20030101, end: 20080916

REACTIONS (3)
  - ARRHYTHMIA [None]
  - ASTHMA [None]
  - DRUG INEFFECTIVE [None]
